FAERS Safety Report 23954704 (Version 1)
Quarter: 2024Q2

REPORT INFORMATION
  Report Type: Spontaneous
  Country: US (occurrence: US)
  Receive Date: 20240610
  Receipt Date: 20240610
  Transmission Date: 20240716
  Serious: No
  Sender: FDA-Public Use
  Company Number: US-ABBVIE-5787965

PATIENT
  Sex: Female

DRUGS (3)
  1. COMBIGAN [Suspect]
     Active Substance: BRIMONIDINE TARTRATE\TIMOLOL MALEATE
     Indication: Product used for unknown indication
     Dosage: FREQUENCY- ONE DROP IN EACH EYE TWICE A DAY
     Route: 047
  2. IBRANCE [Suspect]
     Active Substance: PALBOCICLIB
     Indication: Breast cancer
     Dosage: FREQUENCY- THREE WEEKS ON AND ONE WEEK OFF BY MOUTH
     Route: 048
     Dates: start: 202002
  3. ZOMETA [Suspect]
     Active Substance: ZOLEDRONIC ACID
     Indication: Product used for unknown indication
     Route: 042

REACTIONS (1)
  - Uveitis [Unknown]
